FAERS Safety Report 4560100-2 (Version None)
Quarter: 2005Q1

REPORT INFORMATION
  Report Type: 
  Country: None (occurrence: None)
  Receive Date: 20050125
  Receipt Date: 20050117
  Transmission Date: 20050727
  Serious: Yes (Hospitalization)
  Sender: FDA-Public Use
  Company Number: PHFR2005GB00611

PATIENT
  Age: 84 Year
  Sex: Female

DRUGS (7)
  1. LANSOPRAZOLE [Concomitant]
     Indication: GASTROINTESTINAL HAEMORRHAGE
     Dosage: 15MG/DAY
     Route: 048
  2. CLIMESSE [Concomitant]
     Route: 048
  3. NATRILIX [Concomitant]
     Indication: HYPERTENSION
     Dosage: 1.5MG/DAY
     Route: 048
  4. VALSARTAN [Concomitant]
     Indication: HYPERTENSION
     Dosage: 160 MG, BID
     Route: 048
  5. DIGOXIN [Concomitant]
     Indication: ATRIAL FIBRILLATION
     Route: 065
  6. WARFARIN SODIUM [Concomitant]
     Indication: ATRIAL FIBRILLATION
     Route: 065
  7. TERBINAFINE HCL [Suspect]
     Indication: NAIL TINEA
     Dosage: 250 MG, QD
     Route: 048
     Dates: start: 20041022

REACTIONS (2)
  - PSORIASIS [None]
  - RASH PUSTULAR [None]
